FAERS Safety Report 22392835 (Version 1)
Quarter: 2023Q2

REPORT INFORMATION
  Report Type: Spontaneous
  Country: US (occurrence: US)
  Receive Date: 20230601
  Receipt Date: 20230601
  Transmission Date: 20230722
  Serious: Yes (Life-Threatening)
  Sender: FDA-Public Use
  Company Number: US-STRIDES ARCOLAB LIMITED-2023SP008151

PATIENT
  Age: 70 Year
  Sex: Female

DRUGS (6)
  1. PREDNISOLONE [Suspect]
     Active Substance: PREDNISOLONE
     Indication: B-cell lymphoma
     Dosage: UNK, 2 CYCLICAL(ADMINISTERED UNDER THE R-CHOP CHEMOTHERAPY REGIMEN)
     Route: 065
  2. DOXORUBICIN [Suspect]
     Active Substance: DOXORUBICIN
     Indication: B-cell lymphoma
     Dosage: UNK, 2 CYCLICAL (ADMINISTERED UNDER THE R-CHOP CHEMOTHERAPY REGIMEN)
     Route: 065
  3. RITUXIMAB [Suspect]
     Active Substance: RITUXIMAB
     Indication: B-cell lymphoma
     Dosage: UNK,2 CYCLICAL (ADMINISTERED UNDER THE R-CHOP CHEMOTHERAPY REGIMEN AND THEN ADMINISTERED IN MONOTHER
     Route: 065
  4. RITUXIMAB [Suspect]
     Active Substance: RITUXIMAB
     Dosage: UNK, 2 CYCLICAL(TWO CYCLES OF ONLY RITUXIMAB)
     Route: 065
  5. CYCLOPHOSPHAMIDE [Suspect]
     Active Substance: CYCLOPHOSPHAMIDE
     Indication: B-cell lymphoma
     Dosage: UNK, 2 CYCLICAL(ADMINISTERED UNDER THE R-CHOP CHEMOTHERAPY REGIMEN)
     Route: 065
  6. VINCRISTINE [Suspect]
     Active Substance: VINCRISTINE
     Indication: B-cell lymphoma
     Dosage: UNK, 2 CYCLICAL(ADMINISTERED UNDER THE R-CHOP CHEMOTHERAPY REGIMEN)
     Route: 065

REACTIONS (1)
  - Haemobilia [Unknown]
